FAERS Safety Report 8715260 (Version 2)
Quarter: 2012Q4

REPORT INFORMATION
  Report Type: 
  Country: JP (occurrence: JP)
  Receive Date: 20120809
  Receipt Date: 20121008
  Transmission Date: 20130627
  Serious: Yes (Hospitalization)
  Sender: FDA-Public Use
  Company Number: JP-ASTRAZENECA-2012SE54671

PATIENT
  Age: 63 Year
  Sex: Male

DRUGS (10)
  1. CRESTOR [Suspect]
     Route: 048
     Dates: start: 20120623, end: 20120729
  2. CRESTOR [Suspect]
     Route: 048
     Dates: start: 20120730
  3. SEIBULE [Concomitant]
     Indication: DIABETES MELLITUS
     Route: 065
     Dates: start: 20120327
  4. GLIMICRON [Concomitant]
     Indication: DIABETES MELLITUS
     Route: 065
     Dates: start: 20120327
  5. OLMETEC [Concomitant]
     Indication: HYPERTENSION
     Route: 065
     Dates: start: 20111121
  6. AMLODIN [Concomitant]
     Indication: HYPERTENSION
     Route: 065
     Dates: start: 20120320
  7. LASIX [Concomitant]
     Route: 065
     Dates: start: 20120409
  8. ASPARA POTASSIUM [Concomitant]
     Route: 048
     Dates: start: 20120623
  9. LUPRAC [Concomitant]
     Route: 065
     Dates: start: 20120623
  10. NESP [Concomitant]
     Route: 065
     Dates: start: 20120730

REACTIONS (4)
  - Pneumonia [Unknown]
  - Cardiac failure [Unknown]
  - Hypokalaemia [Unknown]
  - Dehydration [Unknown]
